FAERS Safety Report 10412378 (Version 1)
Quarter: 2014Q3

REPORT INFORMATION
  Report Type: Spontaneous
  Country: US (occurrence: US)
  Receive Date: 20140827
  Receipt Date: 20140827
  Transmission Date: 20150326
  Serious: Yes (Life-Threatening, Hospitalization)
  Sender: FDA-Public Use
  Company Number: US-PFIZER INC-2014235615

PATIENT
  Age: 40 Year
  Sex: Male

DRUGS (1)
  1. VERAPAMIL HCL [Suspect]
     Active Substance: VERAPAMIL HYDROCHLORIDE
     Dosage: APPROXIMATELY 14.5G
     Route: 048

REACTIONS (6)
  - Hypotension [Unknown]
  - Renal failure [Unknown]
  - Bradycardia [Unknown]
  - Pulmonary embolism [Unknown]
  - Intentional overdose [Unknown]
  - Arterial thrombosis [Unknown]
